FAERS Safety Report 11441333 (Version 1)
Quarter: 2015Q3

REPORT INFORMATION
  Report Type: Spontaneous
  Country: US (occurrence: US)
  Receive Date: 20150821
  Receipt Date: 20150821
  Transmission Date: 20151125
  Serious: No
  Sender: FDA-Public Use
  Company Number: US-ELI_LILLY_AND_COMPANY-US200805000280

PATIENT
  Sex: Female

DRUGS (12)
  1. CYMBALTA [Suspect]
     Active Substance: DULOXETINE HYDROCHLORIDE
     Dosage: 60 MG, DAILY (1/D)
     Dates: start: 200711
  2. WARFARIN [Concomitant]
     Active Substance: WARFARIN
  3. CYMBALTA [Suspect]
     Active Substance: DULOXETINE HYDROCHLORIDE
     Dosage: 30 MG, DAILY (1/D)
     Dates: start: 20070925, end: 200711
  4. ATENOLOL. [Concomitant]
     Active Substance: ATENOLOL
  5. LIPITOR [Concomitant]
     Active Substance: ATORVASTATIN CALCIUM
  6. LANOXIN [Concomitant]
     Active Substance: DIGOXIN
  7. LEVOTHYROX [Concomitant]
     Active Substance: LEVOTHYROXINE
  8. METFORMIN [Concomitant]
     Active Substance: METFORMIN HYDROCHLORIDE
  9. RANITIDINE [Concomitant]
     Active Substance: RANITIDINE\RANITIDINE HYDROCHLORIDE
     Indication: GASTROOESOPHAGEAL REFLUX DISEASE
  10. STARLIX [Concomitant]
     Active Substance: NATEGLINIDE
  11. GABAPENTIN. [Concomitant]
     Active Substance: GABAPENTIN
  12. MULTIPLE VITAMINS [Concomitant]
     Active Substance: VITAMINS

REACTIONS (2)
  - Drug ineffective [Recovered/Resolved]
  - Frequent bowel movements [Recovered/Resolved]
